FAERS Safety Report 7871408-7 (Version None)
Quarter: 2011Q4

REPORT INFORMATION
  Report Type: 
  Country: None (occurrence: None)
  Receive Date: 20111029
  Receipt Date: 20110302
  Transmission Date: 20120403
  Serious: Yes (Other)
  Sender: FDA-Public Use
  Company Number: US-AMGEN-USASP2011011810

PATIENT
  Sex: Male

DRUGS (2)
  1. TREXALL [Concomitant]
  2. ENBREL [Suspect]
     Indication: RHEUMATOID ARTHRITIS
     Dosage: 25 MG, Q2WK
     Dates: start: 20030102

REACTIONS (3)
  - T-CELL LYMPHOMA [None]
  - ABDOMINAL DISCOMFORT [None]
  - ORAL DISORDER [None]
